FAERS Safety Report 7921915-3 (Version None)
Quarter: 2011Q4

REPORT INFORMATION
  Report Type: 
  Country: None (occurrence: None)
  Receive Date: 20111117
  Receipt Date: 20111109
  Transmission Date: 20120403
  Serious: Yes (Hospitalization)
  Sender: FDA-Public Use
  Company Number: CZ-ROCHE-1009857

PATIENT
  Age: 32 Year
  Sex: Male

DRUGS (9)
  1. MICARDIS [Concomitant]
     Indication: HYPERTENSION
     Route: 048
     Dates: start: 20101001, end: 20110701
  2. PRESTARIUM (POLAND) [Concomitant]
     Indication: HYPERTENSION
     Route: 048
     Dates: start: 20101001, end: 20110701
  3. RASILEZ [Concomitant]
     Indication: HYPERTENSION
     Route: 048
     Dates: start: 20101001, end: 20110701
  4. EBRANTIL [Concomitant]
     Indication: HYPERTENSION
     Route: 048
     Dates: start: 20101001, end: 20110701
  5. AGEN [Concomitant]
     Indication: HYPERTENSION
     Route: 048
     Dates: start: 20101001, end: 20110701
  6. MIRCERA [Suspect]
     Indication: NEPHROGENIC ANAEMIA
     Route: 041
     Dates: start: 20101001, end: 20110721
  7. CARDURA [Concomitant]
     Indication: HYPERTENSION
     Route: 048
     Dates: start: 20101001, end: 20110701
  8. TENAXUM [Concomitant]
     Indication: HYPERTENSION
     Route: 048
     Dates: start: 20101001, end: 20110701
  9. METOPROLOL TARTRATE [Concomitant]
     Indication: HYPERTENSION
     Route: 048
     Dates: start: 20101001, end: 20110701

REACTIONS (2)
  - EPILEPSY [None]
  - HYPERTENSIVE CRISIS [None]
